FAERS Safety Report 5358048-9 (Version None)
Quarter: 2007Q2

REPORT INFORMATION
  Report Type: 
  Country: None (occurrence: None)
  Receive Date: 20070530
  Receipt Date: 20061108
  Transmission Date: 20071010
  Serious: Yes (Hospitalization)
  Sender: FDA-Public Use
  Company Number: US200611002082

PATIENT
  Age: 54 Year
  Sex: Male
  Weight: 155.6 kg

DRUGS (1)
  1. ZYPREXA [Suspect]
     Indication: TOURETTE'S DISORDER
     Dosage: 5 MG
     Dates: start: 19970101, end: 20030101

REACTIONS (3)
  - CHEST PAIN [None]
  - DIABETES MELLITUS [None]
  - OBESITY [None]
